FAERS Safety Report 7622340-5 (Version None)
Quarter: 2011Q3

REPORT INFORMATION
  Report Type: 
  Country: None (occurrence: None)
  Receive Date: 20110720
  Receipt Date: 20100116
  Transmission Date: 20111222
  Serious: Yes (Death, Other)
  Sender: FDA-Public Use
  Company Number: US-BAYER-201011410NA

PATIENT
  Age: 60 Year
  Sex: Female
  Weight: 57.596 kg

DRUGS (17)
  1. TRASYLOL [Suspect]
     Indication: CAROTID ENDARTERECTOMY
     Dosage: 100ML LOADING DOSE, 1 X 10C KIU
     Route: 042
     Dates: start: 20010330, end: 20010330
  2. TOPROL-XL [Concomitant]
     Dosage: 100 MG, QD
     Route: 048
  3. RED BLOOD CELLS [Concomitant]
     Dosage: 2 U, ONCE
     Route: 042
     Dates: start: 20010330
  4. NORVASC [Concomitant]
     Dosage: 10 MG, QD
     Route: 048
  5. HYDROCORTISONE [Concomitant]
     Dosage: 10 MG
     Dates: start: 20010330
  6. TRASYLOL [Suspect]
     Dosage: 25ML/HR INFUSION
     Route: 042
     Dates: start: 20010330, end: 20010330
  7. TRASYLOL [Suspect]
     Dosage: PUMP PRIME OF 1 X 10C KIU TRASYLOL
     Dates: start: 20010330, end: 20010330
  8. PLATELETS [Concomitant]
     Dosage: 489 ML
     Route: 042
     Dates: start: 20010330
  9. VERSED [Concomitant]
     Dosage: 10 MG
     Route: 042
     Dates: start: 20010330, end: 20010330
  10. HEPARIN [Concomitant]
     Dosage: UNK
     Route: 042
     Dates: start: 20010330
  11. ZESTRIL [Concomitant]
     Dosage: 20 MG, QD
     Route: 048
  12. ACETYLSALICYLIC ACID SRT [Concomitant]
     Dosage: 81 MG, QD
     Route: 048
  13. PAPAVERINE [Concomitant]
     Dosage: UNK
     Route: 042
     Dates: start: 20010330
  14. LANOXIN [Concomitant]
     Dosage: 0.125 MG, QD
     Route: 048
  15. TRASYLOL [Suspect]
     Indication: CORONARY ARTERY BYPASS
     Dosage: 1 ML INITIAL TEST DOSE
     Route: 042
     Dates: start: 20010330, end: 20010330
  16. PROTAMINE SULFATE [Concomitant]
     Dosage: UNK
     Dates: start: 20010330
  17. NITROGLYCERIN [Concomitant]
     Dosage: UNK
     Dates: start: 20010330

REACTIONS (14)
  - RENAL FAILURE [None]
  - RENAL IMPAIRMENT [None]
  - RENAL INJURY [None]
  - CEREBROVASCULAR ACCIDENT [None]
  - DEATH [None]
  - UNEVALUABLE EVENT [None]
  - PAIN [None]
  - DEPRESSION [None]
  - ANXIETY [None]
  - ANHEDONIA [None]
  - CARDIAC DISORDER [None]
  - ORGAN FAILURE [None]
  - FEAR [None]
  - INJURY [None]
